FAERS Safety Report 19673381 (Version 5)
Quarter: 2021Q4

REPORT INFORMATION
  Report Type: Spontaneous
  Country: FR (occurrence: FR)
  Receive Date: 20210809
  Receipt Date: 20211019
  Transmission Date: 20220303
  Serious: Yes (Death, Other)
  Sender: FDA-Public Use
  Company Number: FR-AFSSAPS-BX20216889

PATIENT
  Age: 90 Year
  Sex: Male

DRUGS (12)
  1. METFORMIN [Suspect]
     Active Substance: METFORMIN HYDROCHLORIDE
     Indication: Wrong patient
     Dosage: 1 GRAM, ONCE A DAY(1 GRAM (1 TOTAL))
     Route: 048
     Dates: start: 20210707, end: 20210707
  2. METFORMIN [Suspect]
     Active Substance: METFORMIN HYDROCHLORIDE
     Indication: Wrong patient received product
  3. RAMIPRIL [Suspect]
     Active Substance: RAMIPRIL
     Indication: Wrong patient received product
     Dosage: 2.5 MILLIGRAM, ONCE A DAY(2.5 MILLIGRAM (1 TOTAL))
     Route: 048
     Dates: start: 20210707, end: 20210707
  4. TAMSULOSIN [Suspect]
     Active Substance: TAMSULOSIN
     Indication: Wrong patient received product
     Dosage: 0.4 MILLIGRAM, ONCE A DAY(0.4 MILLIGRAM (1 TOTAL))
     Route: 048
     Dates: start: 20210707, end: 20210707
  5. DOLIPRANE [Suspect]
     Active Substance: ACETAMINOPHEN
     Indication: Product used for unknown indication
     Dosage: 1 GRAM, ONCE A DAY(1 GRAM (1 TOTAL))
     Route: 048
     Dates: start: 20210707, end: 20210707
  6. ELIQUIS [Suspect]
     Active Substance: APIXABAN
     Indication: Wrong patient
     Dosage: 5 MILLIGRAM, ONCE A DAY(5 MILLIGRAM (1 TOTAL))
     Route: 048
     Dates: start: 20210707, end: 20210707
  7. XARELTO [Suspect]
     Active Substance: RIVAROXABAN
     Indication: Arrhythmia
     Dosage: 10 MILLIGRAM, ONCE A DAY(10 MILLIGRAM (1 TOTAL))
     Route: 048
     Dates: start: 20210707, end: 20210707
  8. FUROSEMIDE [Concomitant]
     Active Substance: FUROSEMIDE
     Indication: Product used for unknown indication
     Dosage: UNK
     Route: 065
  9. LEVOTHYROXINE [Concomitant]
     Active Substance: LEVOTHYROXINE
     Indication: Product used for unknown indication
     Dosage: UNK
     Route: 065
  10. IRBESARTAN [Concomitant]
     Active Substance: IRBESARTAN
     Indication: Product used for unknown indication
     Dosage: UNK
     Route: 065
  11. POLYETHYLENE GLYCOLS [Concomitant]
     Active Substance: POLYETHYLENE GLYCOLS
     Indication: Product used for unknown indication
     Dosage: UNK
     Route: 065
  12. NEBIVOLOL HYDROCHLORIDE [Concomitant]
     Active Substance: NEBIVOLOL HYDROCHLORIDE
     Indication: Product used for unknown indication
     Dosage: UNK
     Route: 065

REACTIONS (2)
  - Wrong patient received product [Fatal]
  - Sudden death [Fatal]

NARRATIVE: CASE EVENT DATE: 20210707
